FAERS Safety Report 20316299 (Version 1)
Quarter: 2022Q1

REPORT INFORMATION
  Report Type: Spontaneous
  Country: FR (occurrence: FR)
  Receive Date: 20220110
  Receipt Date: 20220110
  Transmission Date: 20220423
  Serious: Yes (Hospitalization)
  Sender: FDA-Public Use
  Company Number: None

PATIENT
  Age: 87 Year
  Sex: Male
  Weight: 70 kg

DRUGS (3)
  1. MIRTAZAPINE [Suspect]
     Active Substance: MIRTAZAPINE
     Indication: Dementia Alzheimer^s type
     Dosage: 45 MILLIGRAM, QD
     Route: 048
     Dates: end: 202111
  2. LOXAPINE SUCCINATE [Suspect]
     Active Substance: LOXAPINE SUCCINATE
     Indication: Dementia Alzheimer^s type
     Dosage: 20 DRP (DROP (1/12 MILLILITRE)), QD
     Route: 048
     Dates: end: 202111
  3. LOXAPINE SUCCINATE [Suspect]
     Active Substance: LOXAPINE SUCCINATE
     Indication: Dementia Alzheimer^s type
     Dosage: 50 MILLIGRAM, QD, (STRENGTH:50 MG/2 ML)
     Route: 030
     Dates: end: 202111

REACTIONS (3)
  - Inappropriate antidiuretic hormone secretion [Recovered/Resolved]
  - Agitation [Recovered/Resolved]
  - Hyponatraemia [Recovered/Resolved]

NARRATIVE: CASE EVENT DATE: 20211110
